FAERS Safety Report 8468630 (Version 14)
Quarter: 2013Q2

REPORT INFORMATION
  Report Type: Spontaneous
  Country: US (occurrence: US)
  Receive Date: 20120320
  Receipt Date: 20130617
  Transmission Date: 20140414
  Serious: Yes (Hospitalization, Disabling, Other)
  Sender: FDA-Public Use
  Company Number: US-ASTRAZENECA-2011SE41412

PATIENT
  Age: 54 Year
  Sex: Female
  Weight: 67.1 kg

DRUGS (31)
  1. NEXIUM [Suspect]
     Indication: GASTROOESOPHAGEAL REFLUX DISEASE
     Route: 048
     Dates: start: 2001, end: 2010
  2. NEXIUM [Suspect]
     Indication: GASTROOESOPHAGEAL REFLUX DISEASE
     Route: 048
     Dates: start: 20031202
  3. NEXIUM [Suspect]
     Indication: GASTROOESOPHAGEAL REFLUX DISEASE
     Route: 048
     Dates: start: 20090716
  4. NEXIUM [Suspect]
     Indication: GASTROOESOPHAGEAL REFLUX DISEASE
     Route: 048
     Dates: start: 20090828
  5. NEXIUM [Suspect]
     Indication: GASTROOESOPHAGEAL REFLUX DISEASE
     Route: 048
     Dates: start: 20110325
  6. WELCHOL [Concomitant]
     Indication: IRRITABLE BOWEL SYNDROME
     Dates: start: 20120113
  7. ACETAZOLAMIDE [Concomitant]
     Indication: MENIERE^S DISEASE
     Dates: start: 20090716
  8. ACETAZOLAMIDE [Concomitant]
     Indication: MENIERE^S DISEASE
     Dates: start: 20090828
  9. ACETAZOLAMIDE [Concomitant]
     Indication: MENIERE^S DISEASE
     Dates: start: 20110325
  10. DEXILANT/DEXILANT DR [Concomitant]
     Indication: GASTROOESOPHAGEAL REFLUX DISEASE
     Dates: start: 20111221, end: 2012
  11. LIBRAX [Concomitant]
     Indication: IRRITABLE BOWEL SYNDROME
     Dates: start: 20110325
  12. LIBRAX [Concomitant]
     Indication: IRRITABLE BOWEL SYNDROME
     Dates: start: 20090716
  13. LIBRAX [Concomitant]
     Indication: IRRITABLE BOWEL SYNDROME
     Dosage: 5 MG TO 2.5 MG 1 BY MOUTH THREE TIMES PER DAY
     Dates: start: 20090828
  14. VALTREX [Concomitant]
     Indication: HERPES VIRUS INFECTION
     Dates: start: 20120112
  15. ZOLPIDEM [Concomitant]
     Indication: SLEEP DISORDER
  16. QUESTRAN POWDER [Concomitant]
  17. QUESTRAN POWDER [Concomitant]
     Dates: start: 20090716
  18. IMMODIUM [Concomitant]
  19. ZANTAC [Concomitant]
     Indication: GASTROOESOPHAGEAL REFLUX DISEASE
  20. PEPCID [Concomitant]
  21. TUMS [Concomitant]
  22. EVISTA [Concomitant]
     Dosage: 60 MG EVERY DAY BEFORE NOON
  23. BONIVA [Concomitant]
     Dosage: 150 MG ONE TABLET MONTHLY
  24. ANTIVERT [Concomitant]
  25. PATANASE [Concomitant]
     Dosage: SPRAY 2 TIMES BY NASAL ROUT 2 TIMES EVERY DAY
     Route: 045
     Dates: start: 20110325
  26. VIOXX [Concomitant]
  27. PHENAZOPYRIDINE [Concomitant]
     Dates: start: 20120516
  28. KETOROLAC [Concomitant]
     Dates: start: 20120522
  29. GABAPENTIN [Concomitant]
     Indication: MUSCLE SPASMS
  30. RECLAST [Concomitant]
     Indication: BONE DENSITY ABNORMAL
  31. MYLANTA [Concomitant]

REACTIONS (14)
  - Skin cancer [Unknown]
  - Basal cell carcinoma [Unknown]
  - Fall [Unknown]
  - Gallbladder disorder [Unknown]
  - Ligament sprain [Unknown]
  - Osteoporosis [Unknown]
  - Calcium deficiency [Unknown]
  - Vitamin D deficiency [Unknown]
  - Osteopenia [Unknown]
  - Emotional distress [Unknown]
  - Pain [Unknown]
  - Pain in extremity [Unknown]
  - Depression [Unknown]
  - Arthralgia [Unknown]
